FAERS Safety Report 14356205 (Version 1)
Quarter: 2018Q1

REPORT INFORMATION
  Report Type: Report from Study
  Country: AR (occurrence: AR)
  Receive Date: 20180105
  Receipt Date: 20180105
  Transmission Date: 20180509
  Serious: Yes (Death, Hospitalization)
  Sender: FDA-Public Use
  Company Number: PHHY2018AR000582

PATIENT
  Sex: Male

DRUGS (1)
  1. ENTRESTO [Suspect]
     Active Substance: SACUBITRIL\VALSARTAN
     Indication: CARDIAC FAILURE
     Dosage: 50 MG(SACUBITRIL 24 MG/VALSARTAN 26 MG), BID
     Route: 065
     Dates: start: 20170614

REACTIONS (3)
  - Cardiac disorder [Fatal]
  - Swelling [Unknown]
  - Fluid retention [Unknown]
